FAERS Safety Report 13691887 (Version 1)
Quarter: 2017Q2

REPORT INFORMATION
  Report Type: Spontaneous
  Country: US (occurrence: US)
  Receive Date: 20170626
  Receipt Date: 20170626
  Transmission Date: 20170830
  Serious: Yes (Other)
  Sender: FDA-Public Use
  Company Number: US-BRACCO-013760

PATIENT
  Age: 19 Year
  Sex: Female

DRUGS (1)
  1. MULTIHANCE [Suspect]
     Active Substance: GADOBENATE DIMEGLUMINE
     Indication: DIAGNOSTIC PROCEDURE
     Dates: start: 20160714, end: 20160714

REACTIONS (2)
  - Vomiting [Unknown]
  - Throat tightness [Unknown]

NARRATIVE: CASE EVENT DATE: 20160714
